FAERS Safety Report 14734238 (Version 1)
Quarter: 2018Q2

REPORT INFORMATION
  Report Type: Spontaneous
  Country: EE (occurrence: EE)
  Receive Date: 20180409
  Receipt Date: 20180409
  Transmission Date: 20180711
  Serious: Yes (Death, Hospitalization, Other)
  Sender: FDA-Public Use
  Company Number: EE-IMPAX LABORATORIES, INC-2018-IPXL-01077

PATIENT
  Age: 70 Year
  Sex: Female

DRUGS (4)
  1. ENALAPRIL [Suspect]
     Active Substance: ENALAPRIL
     Indication: HYPERTENSION
     Dosage: UNK
     Route: 065
  2. PROPRANOLOL HYDROCHLORIDE IR [Suspect]
     Active Substance: PROPRANOLOL HYDROCHLORIDE
     Indication: TACHYCARDIA
     Dosage: UNK
     Route: 065
  3. MORPHINE SULFATE EXTENDED-RELEASE [Suspect]
     Active Substance: MORPHINE SULFATE
     Indication: CHEST PAIN
     Dosage: UNK
     Route: 042
  4. PARACETAMOL [Suspect]
     Active Substance: ACETAMINOPHEN
     Indication: CHEST PAIN
     Dosage: UNK
     Route: 065

REACTIONS (6)
  - Cardiac tamponade [Fatal]
  - Pericardial effusion [Unknown]
  - Intracardiac thrombus [Unknown]
  - Coronary artery embolism [Unknown]
  - Acute myocardial infarction [Unknown]
  - Pulseless electrical activity [Fatal]

NARRATIVE: CASE EVENT DATE: 201705
